FAERS Safety Report 13507203 (Version 2)
Quarter: 2017Q3

REPORT INFORMATION
  Report Type: Spontaneous
  Country: US (occurrence: US)
  Receive Date: 20170503
  Receipt Date: 20170801
  Transmission Date: 20171127
  Serious: No
  Sender: FDA-Public Use
  Company Number: US-TEVA-714145ACC

PATIENT
  Sex: Female

DRUGS (1)
  1. NICOTINE POLACRILEX [Suspect]
     Active Substance: NICOTINE
     Dosage: UPC NUMBER 1191706728

REACTIONS (3)
  - Burning sensation [Unknown]
  - Throat irritation [Unknown]
  - Palpitations [Unknown]
